FAERS Safety Report 7481248-9 (Version None)
Quarter: 2011Q2

REPORT INFORMATION
  Report Type: 
  Country: None (occurrence: None)
  Receive Date: 20110512
  Receipt Date: 20110512
  Transmission Date: 20111010
  Serious: Yes (Other)
  Sender: FDA-Public Use
  Company Number: None

PATIENT
  Age: 23 Year
  Sex: Female

DRUGS (4)
  1. HALOPERIDOL [Suspect]
     Indication: PSYCHOTIC DISORDER
     Dosage: 2 MG BID; 2 MG Q4H PRN
     Dates: start: 20110503
  2. HALOPERIDOL [Suspect]
     Indication: AGITATION
     Dosage: 2 MG BID; 2 MG Q4H PRN
     Dates: start: 20110503
  3. HALOPERIDOL [Suspect]
     Indication: PSYCHOTIC DISORDER
     Dosage: 2 MG BID; 2 MG Q4H PRN
     Dates: start: 20110430, end: 20110502
  4. HALOPERIDOL [Suspect]
     Indication: AGITATION
     Dosage: 2 MG BID; 2 MG Q4H PRN
     Dates: start: 20110430, end: 20110502

REACTIONS (1)
  - TONGUE DISORDER [None]
